FAERS Safety Report 8779341 (Version 1)
Quarter: 2012Q4

REPORT INFORMATION
  Report Type: 
  Country: US (occurrence: US)
  Receive Date: 20120912
  Receipt Date: 20120912
  Transmission Date: 20130627
  Serious: Yes (Other)
  Sender: FDA-Public Use
  Company Number: US-TEVA-358279USA

PATIENT
  Sex: Female

DRUGS (8)
  1. PROAIR HFA [Suspect]
     Indication: DYSPNOEA
  2. PROMETHAZINE [Concomitant]
     Indication: NAUSEA
  3. TIZANIDINE [Concomitant]
     Indication: MUSCLE RELAXANT THERAPY
  4. PROTONIX [Concomitant]
  5. VITAMIN B COMPLEX [Concomitant]
  6. CYMBALTA [Concomitant]
     Indication: DEPRESSION
  7. OXYCONTIN [Concomitant]
  8. PERCOCET [Concomitant]

REACTIONS (1)
  - Ovarian cancer [Unknown]
